FAERS Safety Report 7564346-0 (Version None)
Quarter: 2011Q2

REPORT INFORMATION
  Report Type: 
  Country: None (occurrence: None)
  Receive Date: 20110622
  Receipt Date: 20110609
  Transmission Date: 20111010
  Serious: Yes (Other)
  Sender: FDA-Public Use
  Company Number: PHHY2011US44537

PATIENT
  Sex: Male

DRUGS (3)
  1. GLEEVEC [Suspect]
  2. SYNTHROID [Concomitant]
  3. SUTENT [Suspect]

REACTIONS (5)
  - CARCINOID TUMOUR OF THE SMALL BOWEL [None]
  - DRUG INEFFECTIVE [None]
  - NEOPLASM MALIGNANT [None]
  - NEOPLASM PROGRESSION [None]
  - STOMATITIS [None]
